FAERS Safety Report 9795863 (Version 2)
Quarter: 2014Q1

REPORT INFORMATION
  Report Type: Spontaneous
  Country: FR (occurrence: FR)
  Receive Date: 20140103
  Receipt Date: 20140115
  Transmission Date: 20141002
  Serious: Yes (Death)
  Sender: FDA-Public Use
  Company Number: FR-NOVOPROD-396760

PATIENT
  Age: 32 Year
  Sex: Female
  Weight: 60 kg

DRUGS (5)
  1. NOVOSEVEN [Suspect]
     Indication: ORGAN TRANSPLANT
     Dosage: 60 UG/KG, SINGLE
     Route: 065
  2. NOVOSEVEN [Suspect]
     Indication: HAEMORRHAGE
  3. RED BLOOD CELLS [Concomitant]
     Dosage: UNK
     Route: 065
  4. PLATELET CONCENTRATE [Concomitant]
     Dosage: UNK
     Route: 065
  5. FRESH FROZEN PLASMA [Concomitant]
     Dosage: UNK
     Route: 065

REACTIONS (1)
  - Multi-organ failure [Fatal]
